FAERS Safety Report 26131373 (Version 1)
Quarter: 2025Q4

REPORT INFORMATION
  Report Type: Spontaneous
  Country: CN (occurrence: CN)
  Receive Date: 20251208
  Receipt Date: 20251208
  Transmission Date: 20260117
  Serious: Yes (Life-Threatening, Other)
  Sender: BAYER HEALTHCARE PHARMACEUTICALS INC.
  Company Number: CN-BAYER-2025A161354

PATIENT
  Age: 48 Year
  Sex: Male
  Weight: 50 kg

DRUGS (2)
  1. ULTRAVIST [Suspect]
     Active Substance: IOPROMIDE
     Indication: Angiocardiogram
     Dosage: 37 G, ONCE, ST
     Route: 040
     Dates: start: 20251203, end: 20251203
  2. ULTRAVIST [Suspect]
     Active Substance: IOPROMIDE
     Indication: Ischaemic cardiomyopathy

REACTIONS (9)
  - Anaphylactic shock [Recovering/Resolving]
  - Confusional state [Recovered/Resolved]
  - Unresponsive to stimuli [Recovered/Resolved]
  - Blood pressure decreased [Recovering/Resolving]
  - Heart rate abnormal [None]
  - Cardiac dysfunction [None]
  - Dyspnoea [Recovering/Resolving]
  - Dysphoria [None]
  - Muscle spasms [None]

NARRATIVE: CASE EVENT DATE: 20251203
